FAERS Safety Report 9159801 (Version 4)
Quarter: 2013Q4

REPORT INFORMATION
  Report Type: Spontaneous
  Country: JP (occurrence: JP)
  Receive Date: 20130313
  Receipt Date: 20131114
  Transmission Date: 20140711
  Serious: Yes (Hospitalization)
  Sender: FDA-Public Use
  Company Number: JP-BAYER-2013-030275

PATIENT
  Age: 75 Year
  Sex: Male
  Weight: 77 kg

DRUGS (8)
  1. NEXAVAR [Suspect]
     Indication: HEPATOCELLULAR CARCINOMA
     Dosage: 400 MG, QD
     Route: 048
     Dates: start: 20130126, end: 20130221
  2. NEXAVAR [Suspect]
     Indication: HEPATOCELLULAR CARCINOMA
     Dosage: 400 MG, QOD
     Dates: start: 20130730, end: 20131013
  3. EXCELASE [Concomitant]
     Dosage: DAILY DOSE 3 DF
     Route: 048
  4. SELBEX [Concomitant]
     Dosage: DAILY DOSE 150 MG
     Route: 048
  5. TAKEPRON [Concomitant]
     Dosage: DAILY DOSE 15 MG
     Route: 048
  6. AMLODIN [Concomitant]
     Dosage: 2.5 MG, QD
     Route: 048
     Dates: start: 20130130
  7. CEFZON [Concomitant]
     Dosage: DAILY DOSE 3 DF
     Route: 048
     Dates: start: 20130205, end: 20130217
  8. INTERFERON [Concomitant]
     Indication: CHRONIC HEPATITIS C
     Dosage: UNK

REACTIONS (2)
  - Pneumonitis [Recovered/Resolved]
  - Liver disorder [Recovering/Resolving]
